FAERS Safety Report 8518483-4 (Version None)
Quarter: 2012Q3

REPORT INFORMATION
  Report Type: 
  Country: None (occurrence: None)
  Receive Date: 20120718
  Receipt Date: 20120409
  Transmission Date: 20120928
  Serious: No
  Sender: FDA-Public Use
  Company Number: US-BRISTOL-MYERS SQUIBB COMPANY-16509176

PATIENT
  Age: 72 Year
  Sex: Female

DRUGS (4)
  1. FENTANYL [Concomitant]
  2. COUMADIN [Suspect]
     Dates: start: 20080101
  3. LIPITOR [Concomitant]
  4. ASPIRIN [Suspect]

REACTIONS (1)
  - BLEEDING TIME PROLONGED [None]
